FAERS Safety Report 11243966 (Version 1)
Quarter: 2015Q3

REPORT INFORMATION
  Report Type: Spontaneous
  Country: US (occurrence: US)
  Receive Date: 20150707
  Receipt Date: 20150707
  Transmission Date: 20151125
  Serious: No
  Sender: FDA-Public Use
  Company Number: US-BAYER-2015-369166

PATIENT
  Age: 68 Year
  Sex: Female
  Weight: 58 kg

DRUGS (2)
  1. CARBIDOPA W/LEVODOPA [Concomitant]
     Active Substance: CARBIDOPA\LEVODOPA
  2. MIRALAX [Suspect]
     Active Substance: POLYETHYLENE GLYCOL 3350
     Indication: CONSTIPATION
     Dosage: UNK
     Route: 048
     Dates: start: 20150623

REACTIONS (3)
  - Abdominal distension [Not Recovered/Not Resolved]
  - Chest discomfort [Not Recovered/Not Resolved]
  - Abdominal rigidity [Not Recovered/Not Resolved]

NARRATIVE: CASE EVENT DATE: 20150629
